FAERS Safety Report 4721461-4 (Version None)
Quarter: 2005Q3

REPORT INFORMATION
  Report Type: 
  Country: None (occurrence: None)
  Receive Date: 20050721
  Receipt Date: 20040922
  Transmission Date: 20060218
  Serious: No
  Sender: FDA-Public Use
  Company Number: US-BRISTOL-MYERS SQUIBB COMPANY-12709804

PATIENT

DRUGS (1)
  1. COUMADIN [Suspect]
     Dosage: THERE ARE VARIOUS LOT #'S; 1MG-UA058A,UB090B,2MG-UN780B,403008,2.5MG-UC125A,POA95A,TN039A
     Route: 048

REACTIONS (1)
  - LABORATORY TEST ABNORMAL [None]
